FAERS Safety Report 7490281-2 (Version None)
Quarter: 2011Q2

REPORT INFORMATION
  Report Type: 
  Country: None (occurrence: None)
  Receive Date: 20110519
  Receipt Date: 20100708
  Transmission Date: 20111010
  Serious: No
  Sender: FDA-Public Use
  Company Number: US-BRISTOL-MYERS SQUIBB COMPANY-15151590

PATIENT
  Age: 46 Year
  Sex: Female

DRUGS (1)
  1. BARACLUDE [Suspect]
     Dosage: SWITCHED FROM 0.5 MG TO 1 MG
     Route: 048
     Dates: start: 20100422

REACTIONS (1)
  - ARRHYTHMIA [None]
